FAERS Safety Report 8402027-1 (Version None)
Quarter: 2012Q2

REPORT INFORMATION
  Report Type: 
  Country: None (occurrence: None)
  Receive Date: 20120601
  Receipt Date: 20120530
  Transmission Date: 20120825
  Serious: Yes (Death, Hospitalization)
  Sender: FDA-Public Use
  Company Number: US-JNJFOC-20120508830

PATIENT
  Sex: Male

DRUGS (4)
  1. AMIODARONE HCL [Concomitant]
     Dates: start: 20120301
  2. CARDENE [Concomitant]
     Route: 041
     Dates: start: 20120301
  3. XARELTO [Suspect]
     Indication: ATRIAL FIBRILLATION
     Route: 048
     Dates: start: 20120301
  4. LOPRESSOR [Concomitant]

REACTIONS (1)
  - HAEMORRHAGE INTRACRANIAL [None]
